FAERS Safety Report 8006668-5 (Version None)
Quarter: 2011Q4

REPORT INFORMATION
  Report Type: 
  Country: None (occurrence: None)
  Receive Date: 20111227
  Receipt Date: 20111219
  Transmission Date: 20120403
  Serious: Yes (Hospitalization, Other)
  Sender: FDA-Public Use
  Company Number: GB-TEVA-308573ISR

PATIENT
  Age: 77 Year
  Sex: Female

DRUGS (9)
  1. AMOXICILLIN AND CLAVULANATE POTASSIUM [Concomitant]
     Dosage: 1875 MILLIGRAM;
  2. METRONIDAZOLE [Concomitant]
     Dosage: 1200 MILLIGRAM;
     Route: 048
  3. CO-AMILOFRUSE [Concomitant]
     Dosage: 1 DOSAGE FORMS; EACH MORNING
     Route: 048
  4. ADIZEM-SR [Concomitant]
     Dosage: 180 MILLIGRAM; ONGOING
     Route: 048
  5. RAMIPRIL [Concomitant]
     Dosage: 10 MILLIGRAM; ONGOING
     Route: 048
  6. LACTULOSE [Concomitant]
     Dosage: 20 ML; ONGOING
     Route: 048
  7. SIMVASTATIN [Concomitant]
     Dosage: 40 MILLIGRAM; AT NIGHT.
     Route: 048
  8. RISEDRONIC ACID [Suspect]
     Route: 048
     Dates: start: 20110923
  9. ASPIRIN [Concomitant]
     Dosage: 75 MILLIGRAM; ONGOING
     Route: 048

REACTIONS (4)
  - ASTHENIA [None]
  - FATIGUE [None]
  - DIVERTICULITIS [None]
  - ABDOMINAL DISCOMFORT [None]
